FAERS Safety Report 17976193 (Version 2)
Quarter: 2021Q3

REPORT INFORMATION
  Report Type: Report from Study
  Country: None (occurrence: US)
  Receive Date: 20200703
  Receipt Date: 20210921
  Transmission Date: 20211014
  Serious: Yes (Other)
  Sender: FDA-Public Use
  Company Number: US-ABBVIE-19K-163-3148865-00

PATIENT
  Age: 72 Year
  Sex: Male

DRUGS (7)
  1. XARELTO [Suspect]
     Active Substance: RIVAROXABAN
     Indication: CARDIAC DISORDER
     Dosage: UNK
     Route: 065
  2. IMBRUVICA [Suspect]
     Active Substance: IBRUTINIB
     Indication: CHRONIC LYMPHOCYTIC LEUKAEMIA
     Route: 048
     Dates: start: 20190528
  3. IMBRUVICA [Suspect]
     Active Substance: IBRUTINIB
     Route: 048
     Dates: start: 20190630
  4. IMBRUVICA [Suspect]
     Active Substance: IBRUTINIB
     Indication: CHRONIC LYMPHOCYTIC LEUKAEMIA
     Route: 048
  5. IMBRUVICA [Suspect]
     Active Substance: IBRUTINIB
     Route: 048
     Dates: start: 20190607, end: 20190711
  6. IMBRUVICA [Suspect]
     Active Substance: IBRUTINIB
     Route: 065
     Dates: start: 2019
  7. IMBRUVICA [Suspect]
     Active Substance: IBRUTINIB
     Route: 048
     Dates: start: 20190607

REACTIONS (23)
  - Oral contusion [Unknown]
  - Ear haemorrhage [Unknown]
  - Post procedural haemorrhage [Recovering/Resolving]
  - Tooth fracture [Not Recovered/Not Resolved]
  - Blood pressure abnormal [Unknown]
  - Nasal dryness [Unknown]
  - Incorrect dose administered [Unknown]
  - Epistaxis [Not Recovered/Not Resolved]
  - Weight decreased [Unknown]
  - Adverse drug reaction [Unknown]
  - Haemoptysis [Unknown]
  - Arthralgia [Unknown]
  - Procedural pain [Not Recovered/Not Resolved]
  - White blood cell count increased [Recovering/Resolving]
  - Aphthous ulcer [Unknown]
  - Haematuria [Unknown]
  - Myalgia [Unknown]
  - Back pain [Unknown]
  - Impaired healing [Unknown]
  - Fatigue [Unknown]
  - Lip injury [Unknown]
  - White blood cell count abnormal [Unknown]
  - Platelet count abnormal [Recovering/Resolving]

NARRATIVE: CASE EVENT DATE: 2019
